FAERS Safety Report 11935012 (Version 1)
Quarter: 2016Q1

REPORT INFORMATION
  Report Type: Not Available
  Country: GR (occurrence: GR)
  Receive Date: 20160121
  Receipt Date: 20160121
  Transmission Date: 20160526
  Serious: Yes (Hospitalization)
  Sender: FDA-Public Use
  Company Number: GR-ANIPHARMA-2016-GR-000001

PATIENT
  Age: 33 Year
  Sex: Male

DRUGS (4)
  1. ALPRAZOLAM (NON-SPECIFIC) [Suspect]
     Active Substance: ALPRAZOLAM
     Dosage: 0.5 MG 3 TIMES DAILY
  2. RISPERIDONE (NON-SPECIFIC) [Suspect]
     Active Substance: RISPERIDONE
     Dosage: 4 MG DAILY
  3. CLOMIPRAMINE [Suspect]
     Active Substance: CLOMIPRAMINE
     Dosage: 10 MG TWICE DAILY
  4. MIRTAZAPINE. [Suspect]
     Active Substance: MIRTAZAPINE
     Dosage: 45 MG DAILY

REACTIONS (2)
  - Drug interaction [Unknown]
  - Serotonin syndrome [Unknown]
